FAERS Safety Report 9911505 (Version 2)
Quarter: 2014Q1

REPORT INFORMATION
  Report Type: Spontaneous
  Country: JP (occurrence: JP)
  Receive Date: 20140219
  Receipt Date: 20140227
  Transmission Date: 20141002
  Serious: Yes (Hospitalization)
  Sender: FDA-Public Use
  Company Number: PHHY2014JP018476

PATIENT
  Age: 35 Year
  Sex: Female
  Weight: 41 kg

DRUGS (7)
  1. CICLOSPORIN [Suspect]
     Indication: STILL^S DISEASE ADULT ONSET
     Dosage: 200 MG, PER DAY
  2. PREDNISOLONE [Suspect]
     Indication: STILL^S DISEASE ADULT ONSET
     Dosage: 50 MG, PER DAY
  3. PREDNISOLONE [Suspect]
     Dosage: 40 MG, PER DAY
  4. TACROLIMUS [Suspect]
     Indication: STILL^S DISEASE ADULT ONSET
     Dosage: 3 MG, PER DAY
  5. MINOCYCLINE [Suspect]
     Indication: HEPATOSPLENOMEGALY
     Dosage: 200 MG, PER DAY
  6. METHYLPREDNISOLONE [Suspect]
     Indication: STILL^S DISEASE ADULT ONSET
     Dosage: 1 G, PER DAY
  7. DORIPENEM [Suspect]
     Indication: HEPATOSPLENOMEGALY
     Dosage: 1.5 G, PER DAY

REACTIONS (9)
  - Histiocytosis haematophagic [Recovering/Resolving]
  - Pyrexia [Unknown]
  - C-reactive protein increased [Unknown]
  - General physical health deterioration [Unknown]
  - Serum ferritin increased [Recovering/Resolving]
  - Leukopenia [Recovering/Resolving]
  - Inflammation [Unknown]
  - Drug resistance [Unknown]
  - Drug ineffective [Unknown]
